FAERS Safety Report 5558234-9 (Version None)
Quarter: 2007Q4

REPORT INFORMATION
  Report Type: 
  Country: None (occurrence: None)
  Receive Date: 20071214
  Receipt Date: 20071203
  Transmission Date: 20080405
  Serious: Yes (Hospitalization, Disabling, Other)
  Sender: FDA-Public Use
  Company Number: FR-PFIZER INC-2007082479

PATIENT
  Sex: Male
  Weight: 59 kg

DRUGS (3)
  1. NEURONTIN [Suspect]
     Indication: EPILEPSY
     Route: 048
  2. ALPRAZOLAM [Concomitant]
  3. AUBEPINE [Concomitant]

REACTIONS (2)
  - OSTEOARTHRITIS [None]
  - OSTEOCHONDROMA [None]
